FAERS Safety Report 11448875 (Version 1)
Quarter: 2015Q3

REPORT INFORMATION
  Report Type: Spontaneous
  Country: IT (occurrence: IT)
  Receive Date: 20150902
  Receipt Date: 20150902
  Transmission Date: 20151125
  Serious: Yes (Other)
  Sender: FDA-Public Use
  Company Number: IT-PFIZER INC-2015281442

PATIENT
  Age: 44 Year
  Sex: Male

DRUGS (2)
  1. SUTENT [Suspect]
     Active Substance: SUNITINIB MALATE
     Indication: RENAL CANCER METASTATIC
     Dosage: 1 DF, DAILY
     Route: 048
     Dates: start: 20150701
  2. XGEVA [Suspect]
     Active Substance: DENOSUMAB
     Indication: RENAL CANCER METASTATIC
     Dosage: 1 DF, MONTHLY
     Route: 058
     Dates: start: 20150701

REACTIONS (2)
  - Paraesthesia [Not Recovered/Not Resolved]
  - Ageusia [Not Recovered/Not Resolved]

NARRATIVE: CASE EVENT DATE: 20150710
